FAERS Safety Report 7214922-X (Version None)
Quarter: 2011Q1

REPORT INFORMATION
  Report Type: 
  Country: None (occurrence: None)
  Receive Date: 20110107
  Receipt Date: 20100514
  Transmission Date: 20110831
  Serious: No
  Sender: FDA-Public Use
  Company Number: A0859789A

PATIENT
  Age: 25 Year
  Sex: Male

DRUGS (2)
  1. LOVAZA [Suspect]
     Indication: ROUTINE HEALTH MAINTENANCE
     Dosage: 1G TWICE PER DAY
     Route: 048
     Dates: start: 20090101
  2. MULTI-VITAMIN [Concomitant]

REACTIONS (1)
  - EPISTAXIS [None]
